FAERS Safety Report 23962536 (Version 3)
Quarter: 2024Q4

REPORT INFORMATION
  Report Type: Spontaneous
  Country: AR (occurrence: AR)
  Receive Date: 20240611
  Receipt Date: 20241015
  Transmission Date: 20250115
  Serious: No
  Sender: PFIZER
  Company Number: AR-PFIZER INC-202400175721

PATIENT
  Age: 8 Year
  Sex: Female

DRUGS (1)
  1. GENOTROPIN [Suspect]
     Active Substance: SOMATROPIN
     Indication: Foetal growth restriction
     Dosage: 0.9 MG, 6 TIMES PER WEEK
     Dates: start: 20210326

REACTIONS (2)
  - Device information output issue [Not Recovered/Not Resolved]
  - Device power source issue [Not Recovered/Not Resolved]

NARRATIVE: CASE EVENT DATE: 20240523
